FAERS Safety Report 6634429-8 (Version None)
Quarter: 2010Q1

REPORT INFORMATION
  Report Type: 
  Country: None (occurrence: None)
  Receive Date: 20100315
  Receipt Date: 20100301
  Transmission Date: 20100710
  Serious: Yes (Other)
  Sender: FDA-Public Use
  Company Number: PL-AMGEN-US398431

PATIENT
  Sex: Male
  Weight: 82 kg

DRUGS (2)
  1. ENBREL [Suspect]
     Indication: ANKYLOSING SPONDYLITIS
     Route: 058
     Dates: start: 20091229, end: 20100216
  2. KETOPROFEN [Concomitant]
     Dosage: UNSPECIFIED
     Route: 048

REACTIONS (4)
  - INJECTION SITE ERYTHEMA [None]
  - INJECTION SITE MACULE [None]
  - INJECTION SITE PRURITUS [None]
  - VERTIGO [None]
